FAERS Safety Report 4938264-8 (Version None)
Quarter: 2006Q1

REPORT INFORMATION
  Report Type: 
  Country: None (occurrence: None)
  Receive Date: 20060309
  Receipt Date: 20060228
  Transmission Date: 20060701
  Serious: Yes (Other)
  Sender: FDA-Public Use
  Company Number: AU-ROCHE-438555

PATIENT
  Age: 62 Year
  Sex: Male

DRUGS (4)
  1. MYCOPHENOLATE MOFETIL [Suspect]
     Indication: DRUG USE FOR UNKNOWN INDICATION
     Route: 065
  2. PREDNISOLONE [Suspect]
     Indication: DRUG USE FOR UNKNOWN INDICATION
     Route: 065
  3. CYCLOSPORINE [Suspect]
     Indication: DRUG USE FOR UNKNOWN INDICATION
     Route: 065
  4. SIMVASTATIN [Suspect]
     Indication: METABOLIC DISORDER
     Route: 065
     Dates: end: 20050408

REACTIONS (2)
  - PAIN IN EXTREMITY [None]
  - RHABDOMYOLYSIS [None]
